FAERS Safety Report 9342695 (Version 1)
Quarter: 2013Q2

REPORT INFORMATION
  Report Type: Spontaneous
  Country: IT (occurrence: IT)
  Receive Date: 20130611
  Receipt Date: 20130611
  Transmission Date: 20140414
  Serious: Yes (Hospitalization)
  Sender: FDA-Public Use
  Company Number: IT-TEVA-410448ISR

PATIENT
  Age: 91 Year
  Sex: Female

DRUGS (9)
  1. MIRTAZAPINE [Suspect]
     Indication: HALLUCINATION
     Dosage: 60 MILLIGRAM DAILY;
     Route: 048
     Dates: start: 20130419, end: 20130419
  2. SERENASE [Suspect]
     Indication: HALLUCINATION
     Dosage: 15 GTT DAILY; SOLUTION FOR ORAL DROPS
     Route: 048
     Dates: start: 20130419, end: 20130419
  3. SEROQUEL [Suspect]
     Indication: HALLUCINATION
     Dosage: 1 DOSAGE FORMS DAILY;
     Route: 048
     Dates: start: 20130419, end: 20130419
  4. TRIATEC [Concomitant]
     Dosage: RAMIPRIL 2.5MG+ HYDROCHLOROTHIAZIDE 12.5MG
  5. INDERAL 40MG [Concomitant]
  6. LYRICA 25MG [Concomitant]
  7. MIRAPEXIN 0.18MG [Concomitant]
  8. CONTRAMAL 100MG/ML [Concomitant]
     Dosage: SOLUTION FOR ORAL DROPS
  9. MADOPAR [Concomitant]

REACTIONS (2)
  - Diarrhoea [Unknown]
  - Sopor [Unknown]
